FAERS Safety Report 24920569 (Version 1)
Quarter: 2025Q1

REPORT INFORMATION
  Report Type: Report from Study
  Country: US (occurrence: US)
  Receive Date: 20250204
  Receipt Date: 20250204
  Transmission Date: 20250408
  Serious: No
  Sender: EXELIXIS
  Company Number: US-EXELIXIS-CABO-24074233

PATIENT
  Sex: Male
  Weight: 94.603 kg

DRUGS (3)
  1. CABOMETYX [Suspect]
     Active Substance: CABOZANTINIB S-MALATE
     Indication: Product used for unknown indication
  2. FOTIVDA [Suspect]
     Active Substance: TIVOZANIB HYDROCHLORIDE
     Indication: Product used for unknown indication
     Dates: start: 20231204, end: 202401
  3. FOTIVDA [Suspect]
     Active Substance: TIVOZANIB HYDROCHLORIDE
     Dates: start: 202401

REACTIONS (7)
  - Unevaluable event [Unknown]
  - Blood pressure increased [Unknown]
  - Diarrhoea [Unknown]
  - Hypoacusis [Unknown]
  - Lymphadenopathy [Unknown]
  - Eating disorder [Unknown]
  - Hepatic enzyme increased [Unknown]
